FAERS Safety Report 22373575 (Version 1)
Quarter: 2023Q2

REPORT INFORMATION
  Report Type: Spontaneous
  Country: GR (occurrence: GR)
  Receive Date: 20230526
  Receipt Date: 20230526
  Transmission Date: 20230721
  Serious: Yes (Death, Life-Threatening)
  Sender: FDA-Public Use
  Company Number: GR-drreddys-LIT/GRE/23/0165892

PATIENT
  Age: 81 Year
  Sex: Male

DRUGS (6)
  1. AZACITIDINE [Suspect]
     Active Substance: AZACITIDINE
     Indication: Acute myeloid leukaemia
     Dosage: 8 CYCLES OF AZACITIDINE
  2. VENETOCLAX [Suspect]
     Active Substance: VENETOCLAX
     Indication: Acute myeloid leukaemia
     Dosage: 8 CYCLES OF VENETOCLAX
  3. ERYTHROPOIETIN [Concomitant]
     Active Substance: ERYTHROPOIETIN
     Indication: Myelodysplastic syndrome with ringed sideroblasts
  4. ERYTHROPOIETIN [Concomitant]
     Active Substance: ERYTHROPOIETIN
     Indication: Myelodysplastic syndrome with multilineage dysplasia
  5. LUSPATERCEPT [Concomitant]
     Active Substance: LUSPATERCEPT
     Indication: Myelodysplastic syndrome with ringed sideroblasts
  6. LUSPATERCEPT [Concomitant]
     Active Substance: LUSPATERCEPT
     Indication: Myelodysplastic syndrome with multilineage dysplasia

REACTIONS (2)
  - Acute myeloid leukaemia [Fatal]
  - Drug ineffective [Unknown]
